FAERS Safety Report 25462109 (Version 1)
Quarter: 2025Q2

REPORT INFORMATION
  Report Type: Spontaneous
  Country: CH (occurrence: CH)
  Receive Date: 20250620
  Receipt Date: 20250620
  Transmission Date: 20250716
  Serious: Yes (Other)
  Sender: PFIZER
  Company Number: CH-PFIZER INC-202500124150

PATIENT
  Age: 40 Year
  Sex: Female

DRUGS (2)
  1. DILTIAZEM HYDROCHLORIDE [Suspect]
     Active Substance: DILTIAZEM HYDROCHLORIDE
     Indication: Hypertension
     Dosage: 180 MG, 2X/DAY
     Dates: end: 2024
  2. ENALAPRIL [Suspect]
     Active Substance: ENALAPRIL
     Indication: Hypertension
     Dosage: 20 MG, 2X/DAY
     Route: 064
     Dates: end: 20240731

REACTIONS (2)
  - Gestational hypertension [Unknown]
  - Maternal exposure during pregnancy [Unknown]
